FAERS Safety Report 24235771 (Version 2)
Quarter: 2024Q3

REPORT INFORMATION
  Report Type: Spontaneous
  Country: MX (occurrence: MX)
  Receive Date: 20240822
  Receipt Date: 20240906
  Transmission Date: 20241017
  Serious: Yes (Other)
  Sender: JOHNSON AND JOHNSON
  Company Number: MX-JNJFOC-20240776475

PATIENT
  Age: 55 Year
  Sex: Female

DRUGS (2)
  1. STELARA [Suspect]
     Active Substance: USTEKINUMAB
     Indication: Psoriasis
     Route: 058
     Dates: start: 2018
  2. STELARA [Suspect]
     Active Substance: USTEKINUMAB
     Indication: Psoriasis

REACTIONS (3)
  - Surgery [Unknown]
  - Psoriasis [Unknown]
  - Drug ineffective [Unknown]
